FAERS Safety Report 4583215-1 (Version None)
Quarter: 2005Q1

REPORT INFORMATION
  Report Type: 
  Country: None (occurrence: None)
  Receive Date: 20050215
  Receipt Date: 20040920
  Transmission Date: 20050727
  Serious: Yes (Death)
  Sender: FDA-Public Use
  Company Number: NO-MERCK-0409NOR00026

PATIENT
  Age: 67 Year
  Sex: Male

DRUGS (3)
  1. DECADRON [Suspect]
     Indication: SMALL CELL CARCINOMA
     Route: 048
     Dates: start: 20040813, end: 20040827
  2. CISPLATIN [Suspect]
     Indication: SMALL CELL LUNG CANCER STAGE UNSPECIFIED
     Route: 041
     Dates: start: 20040810, end: 20040810
  3. ETOPOSIDE [Suspect]
     Indication: SMALL CELL LUNG CANCER STAGE UNSPECIFIED
     Route: 041
     Dates: start: 20040810, end: 20040813

REACTIONS (7)
  - BLOOD SODIUM DECREASED [None]
  - DEATH [None]
  - NEUTROPENIA [None]
  - PLATELET COUNT DECREASED [None]
  - RENAL FAILURE ACUTE [None]
  - SEPSIS [None]
  - WHITE BLOOD CELL COUNT DECREASED [None]
